FAERS Safety Report 6067948-6 (Version None)
Quarter: 2009Q1

REPORT INFORMATION
  Report Type: 
  Country: None (occurrence: None)
  Receive Date: 20090206
  Receipt Date: 20090126
  Transmission Date: 20090719
  Serious: No
  Sender: FDA-Public Use
  Company Number: US-JNJFOC-20090106779

PATIENT
  Sex: Male
  Weight: 74.84 kg

DRUGS (5)
  1. DURAGESIC-100 [Suspect]
     Route: 062
  2. DURAGESIC-100 [Suspect]
     Route: 062
  3. DURAGESIC-100 [Suspect]
     Indication: BRAIN INJURY
     Route: 062
  4. DILAUDID [Concomitant]
     Indication: HEADACHE
     Dosage: UPTO 3 TIMES PER DAY
     Route: 048
  5. FLEXERIL [Concomitant]
     Indication: MUSCLE SPASMS
     Route: 048

REACTIONS (9)
  - AGITATION [None]
  - DISTURBANCE IN ATTENTION [None]
  - DRUG INEFFECTIVE [None]
  - HEADACHE [None]
  - HYPOAESTHESIA [None]
  - INAPPROPRIATE SCHEDULE OF DRUG ADMINISTRATION [None]
  - SEXUAL DYSFUNCTION [None]
  - SOMNOLENCE [None]
  - WITHDRAWAL SYNDROME [None]
